FAERS Safety Report 20016634 (Version 1)
Quarter: 2021Q4

REPORT INFORMATION
  Report Type: Spontaneous
  Country: US (occurrence: None)
  Receive Date: 20211104
  Receipt Date: 20211104
  Transmission Date: 20220303
  Serious: Yes (Other)
  Sender: FDA-Public Use
  Company Number: None

PATIENT
  Age: 62 Year
  Sex: Female
  Weight: 51.75 kg

DRUGS (7)
  1. DESVENLAFAXINE SUCCINATE [Suspect]
     Active Substance: DESVENLAFAXINE SUCCINATE
     Indication: Depression
     Route: 048
     Dates: start: 20210618, end: 20211016
  2. DESVENLAFAXINE SUCCINATE [Suspect]
     Active Substance: DESVENLAFAXINE SUCCINATE
     Indication: Anxiety
  3. CLONAZEPAM [Suspect]
     Active Substance: CLONAZEPAM
  4. ROPINIROLE [Suspect]
     Active Substance: ROPINIROLE
  5. ADDERALL XR [Suspect]
     Active Substance: AMPHETAMINE ASPARTATE\AMPHETAMINE SULFATE\DEXTROAMPHETAMINE SACCHARATE\DEXTROAMPHETAMINE SULFATE
  6. Omega OIls [Concomitant]
  7. Calcium with Vitamin D and K [Concomitant]

REACTIONS (4)
  - Abdominal pain upper [None]
  - Chest pain [None]
  - Pancreatic enzymes increased [None]
  - Hepatic enzyme increased [None]

NARRATIVE: CASE EVENT DATE: 20211016
